FAERS Safety Report 14343693 (Version 4)
Quarter: 2018Q3

REPORT INFORMATION
  Report Type: Spontaneous
  Country: US (occurrence: US)
  Receive Date: 20180102
  Receipt Date: 20180709
  Transmission Date: 20181010
  Serious: No
  Sender: FDA-Public Use
  Company Number: US-PFIZER INC-2018000256

PATIENT
  Age: 71 Year
  Sex: Male
  Weight: 92.97 kg

DRUGS (21)
  1. PROAIR HFA [Concomitant]
     Active Substance: ALBUTEROL SULFATE
     Dosage: UNK
  2. GARLIC. [Concomitant]
     Active Substance: GARLIC
     Dosage: UNK
  3. VITAMIN D3 [Concomitant]
     Active Substance: CHOLECALCIFEROL
     Dosage: UNK
  4. FLUTICASONE. [Concomitant]
     Active Substance: FLUTICASONE
     Dosage: UNK
  5. TAMSULOSIN [Concomitant]
     Active Substance: TAMSULOSIN
     Dosage: 4 MG, ONE TO TWO
     Dates: start: 20170923
  6. MUCUS RELIEF [Concomitant]
     Active Substance: GUAIFENESIN
     Dosage: UNK
  7. MAGNESIUM [Concomitant]
     Active Substance: MAGNESIUM
     Dosage: UNK
  8. XELJANZ XR [Suspect]
     Active Substance: TOFACITINIB CITRATE
     Dosage: 11 MG, DAILY
     Route: 048
     Dates: start: 2017
  9. FISH OIL OMEGA 3 [Concomitant]
     Active Substance: FISH OIL
     Dosage: UNK
  10. XELJANZ XR [Suspect]
     Active Substance: TOFACITINIB CITRATE
     Indication: RHEUMATOID ARTHRITIS
     Dosage: 11 MG, ONCE A DAY
     Route: 048
     Dates: start: 201710
  11. OSTEO BI?FLEX [Concomitant]
     Active Substance: CHONDROITIN SULFATE A\GLUCOSAMINE
     Dosage: UNK
  12. VITAMIN B12 [Concomitant]
     Active Substance: CYANOCOBALAMIN
     Dosage: UNK
  13. TAMSULOSIN [Concomitant]
     Active Substance: TAMSULOSIN
     Indication: DYSURIA
     Dosage: 0.4 MG, ONE TO TWO TIMES A DAY
     Dates: start: 20170923
  14. ESTER?C [Concomitant]
     Active Substance: CALCIUM\VITAMINS
     Dosage: UNK
  15. POTASSIUM GLUCONATE [Concomitant]
     Active Substance: POTASSIUM GLUCONATE
     Dosage: UNK
  16. LIPITOR [Concomitant]
     Active Substance: ATORVASTATIN CALCIUM
     Dosage: UNK
  17. OMEPRAZOLE. [Concomitant]
     Active Substance: OMEPRAZOLE
     Indication: GASTROOESOPHAGEAL REFLUX DISEASE
     Dosage: UNK
  18. XELJANZ XR [Suspect]
     Active Substance: TOFACITINIB CITRATE
     Dosage: 11 MG, UNK
  19. ATORVASTATIN [Concomitant]
     Active Substance: ATORVASTATIN
     Indication: BLOOD CHOLESTEROL ABNORMAL
     Dosage: 20 MG, 1X/DAY
  20. VITAMIN A [Concomitant]
     Active Substance: VITAMIN A
     Dosage: UNK
  21. VITAMIN E [Concomitant]
     Active Substance: .ALPHA.-TOCOPHEROL
     Dosage: UNK

REACTIONS (3)
  - Tooth fracture [Recovering/Resolving]
  - Herpes zoster [Recovered/Resolved]
  - Post herpetic neuralgia [Recovering/Resolving]

NARRATIVE: CASE EVENT DATE: 20171223
